FAERS Safety Report 12745999 (Version 1)
Quarter: 2016Q3

REPORT INFORMATION
  Report Type: Spontaneous
  Country: US (occurrence: US)
  Receive Date: 20160915
  Receipt Date: 20160915
  Transmission Date: 20161109
  Serious: No
  Sender: FDA-Public Use
  Company Number: US-GLAXOSMITHKLINE-US2016133268

PATIENT
  Sex: Male

DRUGS (2)
  1. SEREVENT DISKUS [Suspect]
     Active Substance: SALMETEROL XINAFOATE
  2. FORADIL [Concomitant]
     Active Substance: FORMOTEROL FUMARATE

REACTIONS (2)
  - Dyspnoea [Unknown]
  - Drug ineffective [Unknown]
